FAERS Safety Report 4696010-X (Version None)
Quarter: 2005Q2

REPORT INFORMATION
  Report Type: 
  Country: None (occurrence: None)
  Receive Date: 20050621
  Receipt Date: 20011004
  Transmission Date: 20051028
  Serious: Yes (Hospitalization)
  Sender: FDA-Public Use
  Company Number: FR-GLAXOSMITHKLINE-B0122385A

PATIENT
  Sex: Female
  Weight: 2.5 kg

DRUGS (9)
  1. RETROVIR [Suspect]
     Indication: ANTIVIRAL PROPHYLAXIS
     Dosage: 6.5MG THREE TIMES PER DAY
     Route: 048
     Dates: start: 20000323, end: 20000504
  2. EPIVIR [Suspect]
     Indication: HIV INFECTION
     Dates: start: 20000128
  3. RETROVIR [Suspect]
     Indication: HIV INFECTION
     Dates: end: 20000128
  4. RETROVIR [Suspect]
     Dates: start: 20000323, end: 20000323
  5. NEVIRAPINE [Suspect]
     Indication: HIV INFECTION
     Dosage: 1UNIT PER DAY
     Route: 048
     Dates: start: 20000325, end: 20000325
  6. STAVUDINE [Suspect]
     Indication: HIV INFECTION
     Dates: start: 20000128
  7. NEVIRAPINE [Suspect]
     Indication: ANTIVIRAL PROPHYLAXIS
     Dosage: 200MG TWICE PER DAY
     Dates: start: 20000128
  8. ECONAZOLE NITRATE [Concomitant]
  9. CALCIUM FOLINATE [Concomitant]

REACTIONS (13)
  - ANAEMIA MACROCYTIC [None]
  - BLOOD CREATINE PHOSPHOKINASE INCREASED [None]
  - BLOOD CREATININE INCREASED [None]
  - BLOOD LACTIC ACID INCREASED [None]
  - DRUG EXPOSURE DURING PREGNANCY [None]
  - GAIT DISTURBANCE [None]
  - HAEMANGIOMA [None]
  - HYPERCHOLESTEROLAEMIA [None]
  - HYPERTRIGLYCERIDAEMIA [None]
  - HYPOTONIA [None]
  - METABOLIC DISORDER [None]
  - NEUTROPENIA [None]
  - PLATELET COUNT DECREASED [None]
